FAERS Safety Report 11623833 (Version 1)
Quarter: 2015Q4

REPORT INFORMATION
  Report Type: Spontaneous
  Country: US (occurrence: US)
  Receive Date: 20151013
  Receipt Date: 20151013
  Transmission Date: 20160304
  Serious: No
  Sender: FDA-Public Use
  Company Number: US-JNJFOC-20150317636

PATIENT

DRUGS (3)
  1. ACETAMINOPHEN. [Suspect]
     Active Substance: ACETAMINOPHEN
     Route: 065
  2. ACETAMINOPHEN. [Suspect]
     Active Substance: ACETAMINOPHEN
     Indication: PRODUCT USED FOR UNKNOWN INDICATION
     Route: 065
  3. OTHER THERAPEUTIC DRUGS [Suspect]
     Active Substance: UNSPECIFIED INGREDIENT
     Indication: PRODUCT USED FOR UNKNOWN INDICATION
     Dosage: 100 MG X 3 DAYS FOLLOWED BY 40 MG X DAYS 1 H BEFORE MEAL
     Route: 065

REACTIONS (7)
  - Abdominal pain [Unknown]
  - Vomiting [Unknown]
  - Diarrhoea [Unknown]
  - Blood creatine phosphokinase increased [Unknown]
  - Aspartate aminotransferase increased [None]
  - Alanine aminotransferase increased [None]
  - Transaminases increased [Unknown]
